FAERS Safety Report 5851744-6 (Version None)
Quarter: 2008Q3

REPORT INFORMATION
  Report Type: 
  Country: None (occurrence: None)
  Receive Date: 20080820
  Receipt Date: 20080818
  Transmission Date: 20090109
  Serious: Yes (Other)
  Sender: FDA-Public Use
  Company Number: PHEH2008US06848

PATIENT
  Sex: Female
  Weight: 63.946 kg

DRUGS (6)
  1. RECLAST [Suspect]
     Indication: OSTEOPOROSIS POSTMENOPAUSAL
     Dosage: 5 MG, ONCE YEARLY
     Dates: start: 20080725, end: 20080725
  2. ADVAIR DISKUS 100/50 [Concomitant]
     Dosage: UNK
     Route: 048
  3. NEXIUM [Concomitant]
     Dosage: UNK
     Route: 048
  4. DIOVAN [Concomitant]
     Dosage: 160 MG, UNK
     Route: 048
  5. METFORMIN HCL [Concomitant]
     Dosage: 500 MG, UNK
     Route: 048
  6. CARTIA XT [Concomitant]
     Dosage: 240 MG, UNK

REACTIONS (4)
  - BLINDNESS TRANSIENT [None]
  - DIZZINESS [None]
  - NAUSEA [None]
  - VISION BLURRED [None]
